FAERS Safety Report 8833429 (Version 1)
Quarter: 2012Q4

REPORT INFORMATION
  Report Type: 
  Country: US (occurrence: US)
  Receive Date: 20121010
  Receipt Date: 20121010
  Transmission Date: 20130627
  Serious: No
  Sender: FDA-Public Use
  Company Number: US-VERTEX PHARMACEUTICAL INC.-2012-022016

PATIENT
  Age: 49 Year
  Sex: Male
  Weight: 113.9 kg

DRUGS (14)
  1. INCIVEK [Suspect]
     Indication: HEPATITIS C
     Dosage: UNK
     Dates: start: 201209
  2. PEGASYS [Suspect]
     Indication: HEPATITIS C
     Dosage: UNK
     Dates: start: 201209
  3. RIBAVIRIN [Suspect]
     Indication: HEPATITIS C
     Dosage: UNK
     Dates: start: 201209
  4. LANTUS [Concomitant]
     Indication: DIABETES MELLITUS
  5. NOVOLOG [Concomitant]
     Indication: DIABETES MELLITUS
  6. GLYBURIDE [Concomitant]
     Indication: DIABETES MELLITUS
  7. HYDROCHLOROTHIAZIDE [Concomitant]
     Indication: HYPERTENSION
  8. SETRALINE [Concomitant]
     Indication: DEPRESSION
  9. TAMSULOSIN [Concomitant]
  10. GABAPENTIN [Concomitant]
  11. METOPROLOL [Concomitant]
     Indication: HYPERTENSION
  12. LISINOPRIL [Concomitant]
     Indication: HYPERTENSION
  13. PHENERGAN                          /00033001/ [Concomitant]
     Indication: NAUSEA
  14. ZOFRAN                             /00955301/ [Concomitant]
     Indication: NAUSEA

REACTIONS (2)
  - Urinary hesitation [Not Recovered/Not Resolved]
  - Dysuria [Not Recovered/Not Resolved]
